FAERS Safety Report 5445191-9 (Version None)
Quarter: 2007Q3

REPORT INFORMATION
  Report Type: 
  Country: None (occurrence: None)
  Receive Date: 20070906
  Receipt Date: 20070828
  Transmission Date: 20080115
  Serious: Yes (Other)
  Sender: FDA-Public Use
  Company Number: US-PFIZER INC-2007071765

PATIENT
  Sex: Female

DRUGS (1)
  1. BEXTRA [Suspect]
     Route: 048

REACTIONS (2)
  - HEART INJURY [None]
  - SKIN INJURY [None]
